FAERS Safety Report 14285347 (Version 4)
Quarter: 2020Q3

REPORT INFORMATION
  Report Type: Spontaneous
  Country: US (occurrence: US)
  Receive Date: 20171214
  Receipt Date: 20200903
  Transmission Date: 20201102
  Serious: Yes (Other)
  Sender: FDA-Public Use
  Company Number: US-PFIZER INC-2017463691

PATIENT
  Age: 60 Year
  Sex: Female
  Weight: 146 kg

DRUGS (1)
  1. XELJANZ XR [Suspect]
     Active Substance: TOFACITINIB CITRATE
     Indication: RHEUMATOID ARTHRITIS
     Dosage: 11 MG, UNK
     Route: 048

REACTIONS (10)
  - Gait disturbance [Unknown]
  - Weight increased [Unknown]
  - Renal impairment [Unknown]
  - Bronchitis [Not Recovered/Not Resolved]
  - Illness [Recovered/Resolved]
  - Limb discomfort [Unknown]
  - Anxiety [Unknown]
  - Anaemia [Unknown]
  - Blood potassium increased [Unknown]
  - Alopecia [Unknown]

NARRATIVE: CASE EVENT DATE: 201812
